FAERS Safety Report 25322769 (Version 1)
Quarter: 2025Q2

REPORT INFORMATION
  Report Type: Report from Study
  Country: EG (occurrence: EG)
  Receive Date: 20250516
  Receipt Date: 20250516
  Transmission Date: 20250716
  Serious: Yes (Hospitalization, Other)
  Sender: MERCK SHARP & DOHME LLC
  Company Number: EG-009507513-2408EGY010362

PATIENT
  Age: 59 Year
  Sex: Female

DRUGS (5)
  1. KEYTRUDA [Suspect]
     Active Substance: PEMBROLIZUMAB
     Indication: Endometrial cancer
     Dosage: 200 MILLIGRAM, Q3W
     Route: 042
     Dates: start: 20240811, end: 20240811
  2. KEYTRUDA [Suspect]
     Active Substance: PEMBROLIZUMAB
     Indication: Endometrial cancer
     Dosage: 200 MILLIGRAM, Q3W
     Route: 042
     Dates: start: 20240903, end: 20240903
  3. KEYTRUDA [Suspect]
     Active Substance: PEMBROLIZUMAB
     Indication: Endometrial cancer
     Dosage: 200 MILLIGRAM, Q3W
     Route: 042
     Dates: start: 20241113, end: 20241113
  4. KEYTRUDA [Suspect]
     Active Substance: PEMBROLIZUMAB
     Indication: Endometrial cancer
     Dosage: 200 MILLIGRAM, Q3W, 9TH DOSE
     Route: 042
     Dates: start: 20250216, end: 20250216
  5. LENVATINIB MESYLATE [Suspect]
     Active Substance: LENVATINIB MESYLATE
     Indication: Endometrial cancer
     Route: 048

REACTIONS (17)
  - Large intestine perforation [Unknown]
  - Bacterial infection [Not Recovered/Not Resolved]
  - Inappropriate schedule of product administration [Unknown]
  - Pneumonia [Not Recovered/Not Resolved]
  - Fatigue [Recovering/Resolving]
  - Jaundice [Unknown]
  - Toxicity to various agents [Unknown]
  - Disease complication [Unknown]
  - Haemoglobin decreased [Recovered/Resolved]
  - Ulcer [Not Recovered/Not Resolved]
  - Gastrointestinal inflammation [Recovered/Resolved]
  - Product use issue [Unknown]
  - Malignant neoplasm progression [Unknown]
  - Inappropriate schedule of product administration [Unknown]
  - Lung abscess [Not Recovered/Not Resolved]
  - Inappropriate schedule of product administration [Unknown]
  - Pustule [Unknown]

NARRATIVE: CASE EVENT DATE: 20240801
